FAERS Safety Report 8180306-3 (Version None)
Quarter: 2012Q1

REPORT INFORMATION
  Report Type: 
  Country: None (occurrence: None)
  Receive Date: 20120229
  Receipt Date: 20120203
  Transmission Date: 20120608
  Serious: Yes (Hospitalization)
  Sender: FDA-Public Use
  Company Number: AECAN201100238

PATIENT
  Age: 53 Year
  Sex: Female

DRUGS (24)
  1. SYMBICORT [Concomitant]
  2. EFFEXOR [Concomitant]
  3. CLAVULIN /01000301/ [Concomitant]
  4. VARENICLINE TARTRATE [Concomitant]
  5. AVELOX [Concomitant]
  6. ALBUTEROL [Concomitant]
  7. LYRICA [Concomitant]
  8. PROLASTIN-C [Suspect]
  9. PROLASTIN-C [Suspect]
  10. SPIRIVA [Concomitant]
  11. NAPROXEN [Concomitant]
  12. OXYCODONE HCL [Concomitant]
  13. PROLASTIN-C [Suspect]
  14. INFLUENZA VACCINE [Concomitant]
  15. PREDNISOLONE [Concomitant]
  16. PROLASTIN-C [Suspect]
     Dosage: 5370 MG;QW;IV 5400 MG;QW;IV
     Route: 042
     Dates: start: 20120111
  17. PROLASTIN-C [Suspect]
     Dosage: 5370 MG;QW;IV 5400 MG;QW;IV
     Route: 042
     Dates: start: 20111130
  18. PROLASTIN-C [Suspect]
     Dosage: 5370 MG;QW;IV 5400 MG;QW;IV
     Route: 042
     Dates: start: 20111124
  19. PROLASTIN-C [Suspect]
     Dosage: 5370 MG;QW;IV 5400 MG;QW;IV
     Route: 042
     Dates: start: 20111116, end: 20111116
  20. PROLASTIN-C [Suspect]
     Dosage: 5370 MG;QW;IV 5400 MG;QW;IV
     Route: 042
     Dates: start: 20111207, end: 20111207
  21. PROLASTIN-C [Suspect]
     Dosage: 5370 MG;QW;IV 5400 MG;QW;IV
     Route: 042
     Dates: start: 20110713
  22. PROLASTIN-C [Suspect]
     Dosage: 5370 MG;QW;IV 5400 MG;QW;IV
     Route: 042
     Dates: start: 20111215, end: 20111215
  23. PROLASTIN-C [Suspect]
     Dosage: 5370 MG;QW;IV 5400 MG;QW;IV
     Route: 042
     Dates: start: 20111201
  24. DAXAS [Concomitant]

REACTIONS (3)
  - DYSPNOEA [None]
  - PULMONARY FUNCTION TEST ABNORMAL [None]
  - HEADACHE [None]
